FAERS Safety Report 8477175-0 (Version None)
Quarter: 2012Q2

REPORT INFORMATION
  Report Type: 
  Country: None (occurrence: None)
  Receive Date: 20120625
  Receipt Date: 20120625
  Transmission Date: 20120825
  Serious: Yes (Disabling)
  Sender: FDA-Public Use
  Company Number: None

PATIENT
  Age: 4 Year
  Sex: Male
  Weight: 16.3295 kg

DRUGS (3)
  1. CETIRIZINE HYDROCHLORIDE [Suspect]
     Indication: RHINORRHOEA
     Dosage: 1 TEASPOON, ONCE A DAY, PO
     Route: 048
     Dates: start: 20110201, end: 20120312
  2. CETIRIZINE HYDROCHLORIDE [Suspect]
     Indication: SNEEZING
     Dosage: 1 TEASPOON, ONCE A DAY, PO
     Route: 048
     Dates: start: 20110201, end: 20120312
  3. CETIRIZINE HYDROCHLORIDE [Suspect]
     Indication: COUGH
     Dosage: 1 TEASPOON, ONCE A DAY, PO
     Route: 048
     Dates: start: 20110201, end: 20120312

REACTIONS (3)
  - ABNORMAL BEHAVIOUR [None]
  - DYSKINESIA [None]
  - TIC [None]
